FAERS Safety Report 24824486 (Version 1)
Quarter: 2025Q1

REPORT INFORMATION
  Report Type: Spontaneous
  Country: FR (occurrence: FR)
  Receive Date: 20250109
  Receipt Date: 20250109
  Transmission Date: 20250409
  Serious: Yes (Hospitalization)
  Sender: ACCORD
  Company Number: None

PATIENT
  Age: 50 Year
  Sex: Female
  Weight: 70 kg

DRUGS (12)
  1. CARBOPLATIN [Suspect]
     Active Substance: CARBOPLATIN
     Indication: Metastatic bronchial carcinoma
     Dates: start: 20241030
  2. PEMETREXED [Suspect]
     Active Substance: PEMETREXED
     Indication: Metastatic bronchial carcinoma
     Dates: start: 20241030
  3. AMIVANTAMAB [Suspect]
     Active Substance: AMIVANTAMAB
     Indication: Metastatic bronchial carcinoma
     Dates: start: 20241030
  4. NALOXEGOL [Concomitant]
     Active Substance: NALOXEGOL
  5. APREPITANT [Concomitant]
     Active Substance: APREPITANT
  6. METHYLPREDNISOLONE [Concomitant]
     Active Substance: METHYLPREDNISOLONE
  7. ONDANSETRON [Concomitant]
     Active Substance: ONDANSETRON
  8. ACETAMINOPHEN [Concomitant]
     Active Substance: ACETAMINOPHEN
  9. DEXCHLORPHENIRAMINE MALEATE [Concomitant]
     Active Substance: DEXCHLORPHENIRAMINE MALEATE
  10. XARELTO [Concomitant]
     Active Substance: RIVAROXABAN
  11. PANTOPRAZOLE [Concomitant]
     Active Substance: PANTOPRAZOLE
  12. AMIVANTAMAB [Suspect]
     Active Substance: AMIVANTAMAB
     Indication: Metastatic bronchial carcinoma
     Dates: start: 20241031

REACTIONS (2)
  - Pancytopenia [Recovering/Resolving]
  - Oesophagitis [Recovering/Resolving]

NARRATIVE: CASE EVENT DATE: 20241101
